FAERS Safety Report 10066229 (Version 2)
Quarter: 2018Q1

REPORT INFORMATION
  Report Type: Spontaneous
  Country: CA (occurrence: CA)
  Receive Date: 20140408
  Receipt Date: 20180329
  Transmission Date: 20180508
  Serious: Yes (Other)
  Sender: FDA-Public Use
  Company Number: CA-JNJFOC-20140401809

PATIENT
  Age: 16 Year
  Sex: Male

DRUGS (1)
  1. INFLIXIMAB, RECOMBINANT [Suspect]
     Active Substance: INFLIXIMAB
     Indication: UVEITIS
     Dosage: 300 TO 400 MG, DURATION 3.3 YEARS.
     Route: 042

REACTIONS (2)
  - Product use in unapproved indication [Unknown]
  - Nasopharyngeal cancer [Unknown]
